FAERS Safety Report 15215668 (Version 1)
Quarter: 2018Q3

REPORT INFORMATION
  Report Type: Spontaneous
  Country: US (occurrence: US)
  Receive Date: 20180703
  Receipt Date: 20180703
  Transmission Date: 20181010
  Serious: Yes (Other)
  Sender: FDA-Public Use
  Company Number: None

PATIENT
  Age: 75 Year
  Sex: Female
  Weight: 50.4 kg

DRUGS (12)
  1. SENNA [Concomitant]
     Active Substance: SENNA LEAF\SENNOSIDES\SENNOSIDES A AND B
  2. VIBRAMYCIN [Concomitant]
     Active Substance: DOXYCYCLINE
  3. MORPHINE [Concomitant]
     Active Substance: MORPHINE
  4. VITAMIN B COMPLEX [Concomitant]
     Active Substance: CYANOCOBALAMIN\DEXPANTHENOL\NIACINAMIDE\PYRIDOXINE HYDROCHLORIDE\RIBOFLAVIN 5^-PHOSPHATE SODIUM\THIAMINE HYDROCHLORIDE\VITAMIN B COMPLEX
  5. ATROVENT [Concomitant]
     Active Substance: IPRATROPIUM BROMIDE
  6. MYRBETRIQ [Concomitant]
     Active Substance: MIRABEGRON
  7. CAPECITABINE. [Suspect]
     Active Substance: CAPECITABINE
     Indication: BREAST CANCER
     Route: 048
     Dates: start: 20180416, end: 20180702
  8. MULTIVITAMINS [Concomitant]
     Active Substance: VITAMINS
  9. TROSPIUM [Concomitant]
     Active Substance: TROSPIUM
  10. MS CONTIN [Concomitant]
     Active Substance: MORPHINE SULFATE
  11. PROCHLORPERAZINE. [Concomitant]
     Active Substance: PROCHLORPERAZINE
  12. CALCIUM + D [Concomitant]
     Active Substance: CALCIUM\VITAMIN D

REACTIONS (3)
  - Palmar-plantar erythrodysaesthesia syndrome [None]
  - Stomatitis [None]
  - Diarrhoea [None]
